FAERS Safety Report 5879887-1 (Version None)
Quarter: 2008Q3

REPORT INFORMATION
  Report Type: 
  Country: None (occurrence: None)
  Receive Date: 20080912
  Receipt Date: 20080903
  Transmission Date: 20090109
  Serious: Yes (Other)
  Sender: FDA-Public Use
  Company Number: PHHY2008FR13013

PATIENT
  Sex: Male

DRUGS (1)
  1. TRILEPTAL [Suspect]
     Indication: PAIN
     Dosage: 2400 MG/DAY

REACTIONS (2)
  - PARKINSONISM [None]
  - PERSONALITY CHANGE [None]
